FAERS Safety Report 15922641 (Version 2)
Quarter: 2019Q1

REPORT INFORMATION
  Report Type: Spontaneous
  Country: US (occurrence: US)
  Receive Date: 20190205
  Receipt Date: 20190219
  Transmission Date: 20190417
  Serious: No
  Sender: FDA-Public Use
  Company Number: US-ALLERGAN-1809854US

PATIENT
  Age: 55 Year
  Sex: Female
  Weight: 77.98 kg

DRUGS (3)
  1. BOTOX COSMETIC [Suspect]
     Active Substance: ONABOTULINUMTOXINA
     Indication: SKIN WRINKLING
     Dosage: 50 UNITS, SINGLE
     Route: 030
     Dates: start: 201711, end: 201711
  2. BOTOX COSMETIC [Suspect]
     Active Substance: ONABOTULINUMTOXINA
     Indication: SKIN WRINKLING
  3. BOTOX COSMETIC [Suspect]
     Active Substance: ONABOTULINUMTOXINA
     Indication: SKIN WRINKLING

REACTIONS (6)
  - Expired product administered [Unknown]
  - Drug ineffective [Unknown]
  - Product preparation issue [Unknown]
  - Facial paresis [Not Recovered/Not Resolved]
  - Off label use [Unknown]
  - Brow ptosis [Not Recovered/Not Resolved]

NARRATIVE: CASE EVENT DATE: 201711
